FAERS Safety Report 8249797-3 (Version None)
Quarter: 2012Q2

REPORT INFORMATION
  Report Type: 
  Country: None (occurrence: None)
  Receive Date: 20120402
  Receipt Date: 20120322
  Transmission Date: 20120825
  Serious: Yes (Other)
  Sender: FDA-Public Use
  Company Number: PHHY2011AU68609

PATIENT
  Sex: Male

DRUGS (5)
  1. GLEEVEC [Suspect]
     Dosage: 400 MG
     Route: 048
     Dates: start: 20110808, end: 20120308
  2. LASIX [Concomitant]
     Dosage: 20 MG, UNK
  3. ASPIRIN [Concomitant]
     Dosage: 100 MG, UNK
  4. GLEEVEC [Suspect]
     Indication: CHRONIC MYELOID LEUKAEMIA
     Dosage: 400 MG
     Route: 048
     Dates: start: 20101011, end: 20110601
  5. ZOCOR [Concomitant]
     Dosage: 40 UG, UNK

REACTIONS (4)
  - DYSPNOEA [None]
  - HEARING IMPAIRED [None]
  - INTERSTITIAL LUNG DISEASE [None]
  - LOWER RESPIRATORY TRACT INFECTION [None]
